FAERS Safety Report 18825126 (Version 1)
Quarter: 2021Q1

REPORT INFORMATION
  Report Type: Spontaneous
  Country: US (occurrence: US)
  Receive Date: 20210201
  Receipt Date: 20210201
  Transmission Date: 20210419
  Serious: No
  Sender: FDA-Public Use
  Company Number: US-ABBVIE-20K-163-3328627-00

PATIENT
  Age: 39 Year
  Sex: Male

DRUGS (1)
  1. HUMIRA [Suspect]
     Active Substance: ADALIMUMAB
     Indication: CROHN^S DISEASE
     Dosage: LONGER THAN 2 YEARS
     Route: 058

REACTIONS (3)
  - Device issue [Not Recovered/Not Resolved]
  - Injection site vesicles [Unknown]
  - Injection site pain [Unknown]

NARRATIVE: CASE EVENT DATE: 20200315
